FAERS Safety Report 5886451-7 (Version None)
Quarter: 2008Q3

REPORT INFORMATION
  Report Type: 
  Country: None (occurrence: None)
  Receive Date: 20080917
  Receipt Date: 20080904
  Transmission Date: 20090109
  Serious: Yes (Life-Threatening)
  Sender: FDA-Public Use
  Company Number: FR-JNJFOC-20080901089

PATIENT
  Age: 54 Year
  Sex: Female

DRUGS (8)
  1. OFLOCET [Suspect]
     Indication: PYREXIA
  2. AUGMENTIN '125' [Suspect]
     Indication: PYREXIA
     Route: 048
  3. LEVOTHYROX [Concomitant]
     Indication: HYPOTHYROIDISM
     Route: 065
  4. PREVISCAN [Concomitant]
     Indication: PERIPHERAL VASCULAR DISORDER
     Route: 065
  5. NORSET [Concomitant]
     Route: 065
  6. MOPRAL [Concomitant]
     Route: 065
  7. DOXORUBICIN HCL [Concomitant]
     Indication: OVARIAN CANCER
     Route: 065
  8. INNOHEP [Concomitant]
     Indication: DEEP VEIN THROMBOSIS
     Route: 065

REACTIONS (5)
  - CHOLESTASIS [None]
  - CYTOLYTIC HEPATITIS [None]
  - DIARRHOEA [None]
  - LYMPHADENOPATHY [None]
  - PULMONARY EMBOLISM [None]
